FAERS Safety Report 15633799 (Version 2)
Quarter: 2018Q4

REPORT INFORMATION
  Report Type: Spontaneous
  Country: US (occurrence: US)
  Receive Date: 20181119
  Receipt Date: 20181126
  Transmission Date: 20190205
  Serious: No
  Sender: FDA-Public Use
  Company Number: US-SA-2018SA315245

PATIENT
  Age: 46 Year
  Sex: Male

DRUGS (1)
  1. PRALUENT [Suspect]
     Active Substance: ALIROCUMAB
     Dosage: UNK
     Dates: start: 201807

REACTIONS (5)
  - Mood swings [Unknown]
  - Injection site rash [Unknown]
  - Irritability [Unknown]
  - Insomnia [Unknown]
  - Abdominal distension [Unknown]

NARRATIVE: CASE EVENT DATE: 20181112
